FAERS Safety Report 14107683 (Version 2)
Quarter: 2017Q4

REPORT INFORMATION
  Report Type: Spontaneous
  Country: US (occurrence: US)
  Receive Date: 20171019
  Receipt Date: 20171117
  Transmission Date: 20180321
  Serious: Yes (Hospitalization)
  Sender: FDA-Public Use
  Company Number: US-EMD SERONO-8194529

PATIENT
  Age: 45 Year
  Sex: Female

DRUGS (1)
  1. REBIF [Suspect]
     Active Substance: INTERFERON BETA-1A
     Indication: MULTIPLE SCLEROSIS
     Route: 058
     Dates: start: 20160529

REACTIONS (10)
  - Postoperative wound infection [Recovering/Resolving]
  - Injection site pain [Unknown]
  - Incision site haematoma [Recovering/Resolving]
  - Impaired healing [Not Recovered/Not Resolved]
  - Limb discomfort [Unknown]
  - Drug dose omission [Recovered/Resolved]
  - Fatigue [Not Recovered/Not Resolved]
  - Anaemia [Unknown]
  - Muscular weakness [Not Recovered/Not Resolved]
  - Appendix disorder [Recovering/Resolving]

NARRATIVE: CASE EVENT DATE: 201705
